FAERS Safety Report 5838975-6 (Version None)
Quarter: 2008Q3

REPORT INFORMATION
  Report Type: 
  Country: None (occurrence: None)
  Receive Date: 20080808
  Receipt Date: 20080805
  Transmission Date: 20090109
  Serious: Yes (Life-Threatening, Hospitalization)
  Sender: FDA-Public Use
  Company Number: JP-BOEHRINGER INGELHEIM GMBH, GERMANY-2008-BP-10325NB

PATIENT
  Sex: Female
  Weight: 77 kg

DRUGS (5)
  1. BI-SIFROL TABLETS [Suspect]
     Indication: PARKINSON'S DISEASE
     Route: 048
     Dates: start: 20050518
  2. PANALDINE [Suspect]
     Indication: CEREBRAL INFARCTION
     Route: 048
     Dates: start: 20020501
  3. NEUQUINON [Concomitant]
     Indication: CARDIAC FAILURE
     Route: 048
     Dates: start: 20020501, end: 20080618
  4. TATHION [Concomitant]
     Indication: HEPATIC STEATOSIS
     Route: 048
     Dates: start: 20061221, end: 20080618
  5. CINALONG [Concomitant]
     Indication: HYPERTENSION
     Route: 048
     Dates: start: 20070417, end: 20080618

REACTIONS (2)
  - INTRAVENTRICULAR HAEMORRHAGE [None]
  - THALAMUS HAEMORRHAGE [None]
